FAERS Safety Report 9958888 (Version 2)
Quarter: 2014Q1

REPORT INFORMATION
  Report Type: Spontaneous
  Country: US (occurrence: US)
  Receive Date: 20140305
  Receipt Date: 20140305
  Transmission Date: 20141002
  Serious: Yes (Hospitalization)
  Sender: FDA-Public Use
  Company Number: US-ABBVIE-13P-163-1083106-00

PATIENT
  Age: 65 Year
  Sex: Male
  Weight: 81.27 kg

DRUGS (1)
  1. HUMIRA [Suspect]
     Indication: ANKYLOSING SPONDYLITIS
     Dates: start: 20090430

REACTIONS (3)
  - Fall [Recovered/Resolved]
  - Ankle fracture [Not Recovered/Not Resolved]
  - Impaired healing [Not Recovered/Not Resolved]
